FAERS Safety Report 20857868 (Version 1)
Quarter: 2022Q2

REPORT INFORMATION
  Report Type: Spontaneous
  Country: US (occurrence: US)
  Receive Date: 20220521
  Receipt Date: 20220521
  Transmission Date: 20220721
  Serious: No
  Sender: FDA-Public Use
  Company Number: US-BRISTOL-MYERS SQUIBB COMPANY-2022-039602

PATIENT
  Age: 52 Year
  Sex: Female

DRUGS (1)
  1. THALOMID [Suspect]
     Active Substance: THALIDOMIDE
     Indication: Premature menopause
     Route: 048
     Dates: start: 20220302

REACTIONS (4)
  - Disturbance in attention [Unknown]
  - Product dose omission issue [Unknown]
  - Dry mouth [Unknown]
  - Intentional product use issue [Unknown]
